FAERS Safety Report 8121008 (Version 2)
Quarter: 2014Q1

REPORT INFORMATION
  Report Type: Report from Study
  Country: DE (occurrence: DE)
  Receive Date: 20110906
  Receipt Date: 20140331
  Transmission Date: 20141002
  Serious: Yes (Hospitalization)
  Sender: FDA-Public Use
  Company Number: DE-ROCHE-732256

PATIENT
  Age: 39 Year
  Sex: Female
  Weight: 68 kg

DRUGS (17)
  1. BEVACIZUMAB [Suspect]
     Indication: BREAST CANCER METASTATIC
     Dosage: 6TH CYCLE WAS STARTED ON 18 AUG 2010
     Route: 042
     Dates: start: 20100505, end: 20100505
  2. BEVACIZUMAB [Suspect]
     Route: 042
     Dates: start: 20101111, end: 20101111
  3. BEVACIZUMAB [Suspect]
     Dosage: 6TH CYCLE
     Route: 042
  4. TAXOTERE [Suspect]
     Indication: BREAST CANCER METASTATIC
     Dosage: ONE APPLICATION ON 18 AUG 2010
     Route: 042
  5. BISOPROLOL [Concomitant]
     Indication: TACHYCARDIA
     Route: 065
     Dates: start: 20101222
  6. CIPROFLOXACIN [Concomitant]
     Indication: INFECTION
     Dosage: 500
     Route: 065
     Dates: start: 20100514, end: 20100524
  7. CIPROFLOXACIN [Concomitant]
     Route: 065
     Dates: start: 20100601, end: 20100611
  8. GRANOCYTE [Concomitant]
     Indication: LEUKOPENIA
     Route: 065
     Dates: start: 20100602, end: 20100603
  9. GRANOCYTE [Concomitant]
     Route: 065
     Dates: start: 20100623, end: 20100623
  10. GRANOCYTE [Concomitant]
     Route: 065
     Dates: start: 20100713, end: 20100714
  11. IBUPROFEN [Concomitant]
     Indication: BONE PAIN
     Route: 065
     Dates: start: 20101106
  12. DOCETAXEL [Concomitant]
     Indication: BREAST CANCER
     Route: 065
     Dates: start: 20100505
  13. DOCETAXEL [Concomitant]
     Route: 065
     Dates: start: 20100526
  14. DOCETAXEL [Concomitant]
     Route: 065
     Dates: start: 20100616
  15. DOCETAXEL [Concomitant]
     Route: 065
     Dates: start: 20100707
  16. DOCETAXEL [Concomitant]
     Route: 065
     Dates: start: 20100728
  17. DOCETAXEL [Concomitant]
     Route: 065
     Dates: start: 20100818

REACTIONS (1)
  - Pleural effusion [Recovered/Resolved]
